FAERS Safety Report 15191473 (Version 1)
Quarter: 2018Q3

REPORT INFORMATION
  Report Type: Report from Study
  Country: US (occurrence: US)
  Receive Date: 20180724
  Receipt Date: 20180724
  Transmission Date: 20181010
  Serious: No
  Sender: FDA-Public Use
  Company Number: US-AMGEN-USASL2018053079

PATIENT
  Age: 82 Year
  Sex: Male

DRUGS (1)
  1. KYPROLIS [Suspect]
     Active Substance: CARFILZOMIB
     Indication: PLASMA CELL MYELOMA
     Dosage: UNK,ONCE A WEEK FOR 3 WEEKS EACH CYCLE
     Route: 065

REACTIONS (4)
  - Red blood cell count decreased [Unknown]
  - Off label use [Unknown]
  - Groin pain [Not Recovered/Not Resolved]
  - Asthenia [Not Recovered/Not Resolved]
